FAERS Safety Report 9811250 (Version 2)
Quarter: 2014Q4

REPORT INFORMATION
  Report Type: Spontaneous
  Country: US (occurrence: US)
  Receive Date: 20140110
  Receipt Date: 20141229
  Transmission Date: 20150529
  Serious: Yes (Other)
  Sender: FDA-Public Use
  Company Number: US-SANOFI-AVENTIS-2013SA035612

PATIENT
  Age: 71 Year

DRUGS (3)
  1. PLAVIX [Suspect]
     Active Substance: CLOPIDOGREL BISULFATE
     Indication: PERIPHERAL ARTERIAL OCCLUSIVE DISEASE
     Dosage: FREQU: INITIALLY QD, THEN CHANGED TO EVERY OTHER DAY AND THEN ONCE PER WEEK AND STOPPED NOV. 2011
     Route: 048
     Dates: start: 200903, end: 201111
  2. PLAVIX [Suspect]
     Active Substance: CLOPIDOGREL BISULFATE
     Indication: ARTERIAL OCCLUSIVE DISEASE
     Dosage: FREQU: INITIALLY QD, THEN CHANGED TO EVERY OTHER DAY AND THEN ONCE PER WEEK AND STOPPED NOV. 2011
     Route: 048
     Dates: start: 200903, end: 201111
  3. PLAVIX [Suspect]
     Active Substance: CLOPIDOGREL BISULFATE
     Indication: PROPHYLAXIS
     Dosage: FREQU: INITIALLY QD, THEN CHANGED TO EVERY OTHER DAY AND THEN ONCE PER WEEK AND STOPPED NOV. 2011
     Route: 048
     Dates: start: 200903, end: 201111

REACTIONS (2)
  - Epistaxis [Unknown]
  - Gastrointestinal haemorrhage [Not Recovered/Not Resolved]

NARRATIVE: CASE EVENT DATE: 20101008
